FAERS Safety Report 8401097-4 (Version None)
Quarter: 2012Q2

REPORT INFORMATION
  Report Type: 
  Country: None (occurrence: None)
  Receive Date: 20120601
  Receipt Date: 20120529
  Transmission Date: 20120825
  Serious: No
  Sender: FDA-Public Use
  Company Number: US-PFIZER INC-2012130306

PATIENT
  Sex: Male
  Weight: 108 kg

DRUGS (2)
  1. NEURONTIN [Suspect]
     Indication: INTERVERTEBRAL DISC PROTRUSION
     Dosage: UNK
  2. NEURONTIN [Suspect]
     Indication: DIABETIC NEUROPATHY

REACTIONS (2)
  - NAUSEA [None]
  - DRUG INEFFECTIVE [None]
